FAERS Safety Report 5367925-4 (Version None)
Quarter: 2007Q2

REPORT INFORMATION
  Report Type: 
  Country: None (occurrence: None)
  Receive Date: 20070622
  Receipt Date: 20070612
  Transmission Date: 20071010
  Serious: Yes (Other)
  Sender: FDA-Public Use
  Company Number: US-AMGEN-US225967

PATIENT
  Sex: Male
  Weight: 90 kg

DRUGS (12)
  1. EPOGEN [Suspect]
     Indication: DIALYSIS
     Route: 058
     Dates: start: 20070301
  2. ZOCOR [Concomitant]
     Dates: start: 20070305
  3. LABETALOL HCL [Concomitant]
     Dates: start: 20070328
  4. L-CARNITINE [Concomitant]
     Dates: start: 20070416
  5. ERGOCALCIFEROL [Concomitant]
     Dates: start: 20070416
  6. RENAGEL [Concomitant]
  7. IRON [Concomitant]
  8. NORVASC [Concomitant]
     Dates: start: 20070131
  9. CALCIUM CHLORIDE [Concomitant]
  10. MIRALAX [Concomitant]
  11. COLACE [Concomitant]
  12. UNSPECIFIED VITAMINS [Concomitant]

REACTIONS (4)
  - ANTI-ERYTHROPOIETIN ANTIBODY POSITIVE [None]
  - BONE MARROW FAILURE [None]
  - NON-NEUTRALISING ANTIBODIES POSITIVE [None]
  - RETICULOCYTE COUNT DECREASED [None]
